FAERS Safety Report 22089333 (Version 3)
Quarter: 2023Q1

REPORT INFORMATION
  Report Type: Spontaneous
  Country: JP (occurrence: JP)
  Receive Date: 20230313
  Receipt Date: 20230326
  Transmission Date: 20230418
  Serious: No
  Sender: FDA-Public Use
  Company Number: JP-UCBSA-2023012961

PATIENT
  Age: 92 Year
  Sex: Male

DRUGS (2)
  1. LACOSAMIDE [Suspect]
     Active Substance: LACOSAMIDE
     Indication: Status epilepticus
     Dosage: 200 MILLIGRAM, ONCE DAILY (QD)
  2. LACOSAMIDE [Suspect]
     Active Substance: LACOSAMIDE
     Indication: Off label use

REACTIONS (3)
  - Sinus bradycardia [Recovered/Resolved]
  - Blood pressure systolic decreased [Unknown]
  - Off label use [Unknown]
